FAERS Safety Report 8023249-8 (Version None)
Quarter: 2012Q1

REPORT INFORMATION
  Report Type: 
  Country: None (occurrence: None)
  Receive Date: 20120104
  Receipt Date: 20111226
  Transmission Date: 20120608
  Serious: Yes (Other)
  Sender: FDA-Public Use
  Company Number: BR-BAYER-2012-000635

PATIENT
  Age: 31 Year
  Sex: Female
  Weight: 60 kg

DRUGS (3)
  1. ESTRADIOL VALERATE/DIENOGEST [Suspect]
     Indication: CONTRACEPTION
  2. ESTRADIOL VALERATE/DIENOGEST [Suspect]
     Indication: ENDOMETRIOSIS
     Dosage: 1 DF, QD
     Route: 048
     Dates: start: 20111101
  3. RESVERATROL [Concomitant]
     Indication: ENDOMETRIOSIS
     Dosage: 1 DF, QD
     Route: 048
     Dates: start: 20090101

REACTIONS (4)
  - METRORRHAGIA [None]
  - ABDOMINAL PAIN [None]
  - VAGINAL HAEMORRHAGE [None]
  - GENITAL ABSCESS [None]
